FAERS Safety Report 7449659-5 (Version None)
Quarter: 2011Q2

REPORT INFORMATION
  Report Type: 
  Country: None (occurrence: None)
  Receive Date: 20110420
  Receipt Date: 20110407
  Transmission Date: 20111010
  Serious: Yes (Hospitalization)
  Sender: FDA-Public Use
  Company Number: 2011MA003550

PATIENT
  Age: 81 Year
  Sex: Male

DRUGS (2)
  1. METFORMIN HYDROCHLORIDE [Suspect]
     Indication: TYPE 2 DIABETES MELLITUS
     Dosage: 850 MG; TID;
  2. LANTUS [Concomitant]

REACTIONS (8)
  - METABOLIC ACIDOSIS [None]
  - LETHARGY [None]
  - HYPERCAPNIA [None]
  - LACTIC ACIDOSIS [None]
  - FATIGUE [None]
  - CYANOSIS [None]
  - VERTIGO [None]
  - HYPOXIA [None]
